FAERS Safety Report 24977266 (Version 1)
Quarter: 2025Q1

REPORT INFORMATION
  Report Type: Spontaneous
  Country: FR (occurrence: FR)
  Receive Date: 20250217
  Receipt Date: 20250217
  Transmission Date: 20250409
  Serious: Yes (Hospitalization)
  Sender: CHEPLAPHARM
  Company Number: FR-CHEPLA-2025001970

PATIENT
  Age: 22 Year
  Sex: Female

DRUGS (2)
  1. OLANZAPINE PAMOATE [Suspect]
     Active Substance: OLANZAPINE PAMOATE
     Indication: Schizophrenia
     Dosage: INJECTION OF 300 MG EVERY 15 DAYS COMBINED WITH 10 MG PER OS DAILY
  2. OLANZAPINE PAMOATE [Suspect]
     Active Substance: OLANZAPINE PAMOATE
     Indication: Schizophrenia
     Dosage: INJECTION OF 300 MG EVERY 15 DAYS COMBINED WITH 10 MG PER OS DAILY ?DAILY DOSE: 10 MILLIGRAM

REACTIONS (4)
  - Psychiatric decompensation [Unknown]
  - Prescribed overdose [Unknown]
  - Off label use [Unknown]
  - Drug ineffective [Unknown]
